FAERS Safety Report 18215210 (Version 2)
Quarter: 2020Q3

REPORT INFORMATION
  Report Type: Spontaneous
  Country: US (occurrence: US)
  Receive Date: 20200831
  Receipt Date: 20200928
  Transmission Date: 20201103
  Serious: No
  Sender: FDA-Public Use
  Company Number: US-FRESENIUS KABI-FK202008814

PATIENT
  Sex: Female

DRUGS (1)
  1. DOXY 100 [Suspect]
     Active Substance: DOXYCYCLINE HYCLATE
     Indication: PRODUCT USED FOR UNKNOWN INDICATION
     Dosage: UNKNOWN
     Route: 065

REACTIONS (1)
  - Skin laceration [Unknown]

NARRATIVE: CASE EVENT DATE: 20200819
